FAERS Safety Report 4982604-0 (Version None)
Quarter: 2006Q2

REPORT INFORMATION
  Report Type: 
  Country: None (occurrence: None)
  Receive Date: 20060420
  Receipt Date: 20060405
  Transmission Date: 20061013
  Serious: Yes (Other)
  Sender: FDA-Public Use
  Company Number: 2006BH007552

PATIENT
  Age: 71 Year
  Sex: Male

DRUGS (1)
  1. BALANCED SALT SOLUTION [Suspect]
     Indication: CATARACT OPERATION
     Dates: start: 20060328, end: 20060328

REACTIONS (4)
  - BLINDNESS UNILATERAL [None]
  - ENDOPHTHALMITIS [None]
  - EYE PAIN [None]
  - POST PROCEDURAL COMPLICATION [None]
